FAERS Safety Report 8498736-9 (Version None)
Quarter: 2012Q3

REPORT INFORMATION
  Report Type: 
  Country: None (occurrence: None)
  Receive Date: 20120709
  Receipt Date: 20120628
  Transmission Date: 20120928
  Serious: Yes (Other)
  Sender: FDA-Public Use
  Company Number: US-AMGEN-USASP2011040502

PATIENT
  Age: 74 Year
  Sex: Male
  Weight: 76.553 kg

DRUGS (4)
  1. METHOTREXATE [Concomitant]
     Dosage: UNK
  2. ARAVA [Concomitant]
     Dosage: UNK
  3. ENBREL [Suspect]
     Indication: RHEUMATOID ARTHRITIS
     Dosage: 50 MG, QWK
     Route: 058
     Dates: start: 20110701
  4. ENBREL [Suspect]
     Dosage: 25 MG, QWK
     Route: 058
     Dates: start: 20110526, end: 20110701

REACTIONS (4)
  - THROMBOCYTOPENIA [None]
  - CONTUSION [None]
  - JOINT SWELLING [None]
  - JOINT INJURY [None]
